FAERS Safety Report 23616936 (Version 1)
Quarter: 2024Q1

REPORT INFORMATION
  Report Type: Spontaneous
  Country: US (occurrence: None)
  Receive Date: 20240309
  Receipt Date: 20240309
  Transmission Date: 20240409
  Serious: Yes (Hospitalization, Other)
  Sender: FDA-Public Use
  Company Number: None

PATIENT
  Age: 50 Year
  Sex: Female
  Weight: 87.75 kg

DRUGS (11)
  1. MOUNJARO [Suspect]
     Active Substance: TIRZEPATIDE
     Indication: Diabetes mellitus
     Dosage: OTHER QUANTITY : 2.5 INJECTION(S);?FREQUENCY : AT BEDTIME;?
     Dates: start: 202310, end: 20231015
  2. Omnipod [Concomitant]
  3. Dexcom [Concomitant]
  4. LEVOTHYROXINE [Concomitant]
     Active Substance: LEVOTHYROXINE\LEVOTHYROXINE SODIUM
  5. PROVIGIL [Concomitant]
     Active Substance: MODAFINIL
  6. Presti [Concomitant]
  7. NEXIUM [Concomitant]
     Active Substance: ESOMEPRAZOLE MAGNESIUM
  8. MELOXICAM [Concomitant]
     Active Substance: MELOXICAM
  9. ATORVASTATIN [Concomitant]
     Active Substance: ATORVASTATIN
  10. TYLENOL [Concomitant]
     Active Substance: ACETAMINOPHEN
  11. women^s vitamin [Concomitant]

REACTIONS (6)
  - Nausea [None]
  - Dizziness [None]
  - Vomiting [None]
  - Renal failure [None]
  - Bedridden [None]
  - Near death experience [None]

NARRATIVE: CASE EVENT DATE: 20231011
